FAERS Safety Report 15610372 (Version 1)
Quarter: 2018Q4

REPORT INFORMATION
  Report Type: Spontaneous
  Country: US (occurrence: US)
  Receive Date: 20181113
  Receipt Date: 20181113
  Transmission Date: 20190205
  Serious: No
  Sender: FDA-Public Use
  Company Number: US-ROCHE-2075153

PATIENT
  Age: 3 Year
  Sex: Female
  Weight: 16.34 kg

DRUGS (1)
  1. TAMIFLU [Suspect]
     Active Substance: OSELTAMIVIR PHOSPHATE
     Indication: INFLUENZA
     Dosage: ONE TEASPOON TWICE A DAY ;ONGOING: YES
     Route: 048
     Dates: start: 20180209

REACTIONS (2)
  - No adverse event [Unknown]
  - Product storage error [Unknown]
